FAERS Safety Report 17902790 (Version 2)
Quarter: 2020Q2

REPORT INFORMATION
  Report Type: Report from Study
  Country: US (occurrence: US)
  Receive Date: 20200616
  Receipt Date: 20200619
  Transmission Date: 20200714
  Serious: Yes (Death, Hospitalization)
  Sender: FDA-Public Use
  Company Number: US-EXELIXIS-CABO-19024006

PATIENT
  Age: 66 Year
  Sex: Male
  Weight: 72.56 kg

DRUGS (20)
  1. CABOMETYX [Suspect]
     Active Substance: CABOZANTINIB S-MALATE
     Dosage: 40 MG, QD (Q AM W/O FOOD)
     Dates: start: 20191116, end: 20191223
  2. GABAPENTIN. [Concomitant]
     Active Substance: GABAPENTIN
  3. DEXAMETHASONE. [Concomitant]
     Active Substance: DEXAMETHASONE
  4. HUMALOG [Concomitant]
     Active Substance: INSULIN LISPRO
  5. METFORMIN [Concomitant]
     Active Substance: METFORMIN HYDROCHLORIDE
  6. SODIUM CHLORIDE. [Concomitant]
     Active Substance: SODIUM CHLORIDE
  7. VITAMIN B12 [Concomitant]
     Active Substance: CYANOCOBALAMIN
  8. FLUOCINONIDE. [Concomitant]
     Active Substance: FLUOCINONIDE
  9. HYDROMORPHONE [Concomitant]
     Active Substance: HYDROMORPHONE
  10. NYSTATIN. [Concomitant]
     Active Substance: NYSTATIN
  11. PANTOPRAZOLE [Concomitant]
     Active Substance: PANTOPRAZOLE
  12. ZOLPIDEM [Concomitant]
     Active Substance: ZOLPIDEM TARTRATE
  13. CABOMETYX [Suspect]
     Active Substance: CABOZANTINIB S-MALATE
     Indication: HEPATOCELLULAR CARCINOMA
     Dosage: 60 MG, QD (AM WITHOUT FOOD)
     Dates: start: 20190812, end: 20190919
  14. CABOMETYX [Suspect]
     Active Substance: CABOZANTINIB S-MALATE
     Dosage: 40 MG, QD (Q AM W/O FOOD)
     Dates: start: 20200104, end: 20200325
  15. FLUCONAZOLE. [Concomitant]
     Active Substance: FLUCONAZOLE
  16. CABOMETYX [Suspect]
     Active Substance: CABOZANTINIB S-MALATE
     Dosage: 40 MG, QD (Q AM W/O FOOD)
     Dates: start: 20191031, end: 20191110
  17. CABOMETYX [Suspect]
     Active Substance: CABOZANTINIB S-MALATE
     Dosage: 40 MG, QD(Q AM W/O FOOD)
     Dates: start: 20191004, end: 20191024
  18. KEPPRA [Concomitant]
     Active Substance: LEVETIRACETAM
  19. LANTUS [Concomitant]
     Active Substance: INSULIN GLARGINE
  20. LEVETIRACETAM. [Concomitant]
     Active Substance: LEVETIRACETAM

REACTIONS (13)
  - Seasonal allergy [Unknown]
  - Decreased appetite [Not Recovered/Not Resolved]
  - Genital rash [Unknown]
  - Constipation [Unknown]
  - Rash [Recovering/Resolving]
  - Malignant neoplasm progression [Fatal]
  - Retroperitoneal haemorrhage [Recovered/Resolved with Sequelae]
  - Asthenia [Not Recovered/Not Resolved]
  - Dysphonia [Not Recovered/Not Resolved]
  - Palmar-plantar erythrodysaesthesia syndrome [Not Recovered/Not Resolved]
  - Cholelithiasis [Not Recovered/Not Resolved]
  - Abdominal pain [Not Recovered/Not Resolved]
  - Taste disorder [Not Recovered/Not Resolved]

NARRATIVE: CASE EVENT DATE: 20190916
